FAERS Safety Report 19934394 (Version 1)
Quarter: 2021Q4

REPORT INFORMATION
  Report Type: Spontaneous
  Country: EG (occurrence: EG)
  Receive Date: 20211008
  Receipt Date: 20211008
  Transmission Date: 20220303
  Serious: Yes (Other)
  Sender: FDA-Public Use
  Company Number: EG-NOVARTISPH-NVSC2021EG229245

PATIENT
  Sex: Male

DRUGS (1)
  1. CEFTRIAXONE [Suspect]
     Active Substance: CEFTRIAXONE
     Indication: COVID-19
     Dosage: 1 MG
     Route: 030
     Dates: start: 20210923

REACTIONS (4)
  - Anaphylactic reaction [Unknown]
  - Dyspnoea [Unknown]
  - Erythema [Unknown]
  - Product use in unapproved indication [Unknown]
